FAERS Safety Report 5104164-6 (Version None)
Quarter: 2006Q3

REPORT INFORMATION
  Report Type: 
  Country: None (occurrence: None)
  Receive Date: 20060911
  Receipt Date: 20060828
  Transmission Date: 20061208
  Serious: No
  Sender: FDA-Public Use
  Company Number: 02100-JPN-06-0336

PATIENT
  Age: 67 Year
  Sex: Male

DRUGS (8)
  1. CILOSTAZOL [Suspect]
     Indication: PLATELET AGGREGATION INHIBITION
     Dosage: 100 MG ORAL
     Route: 048
     Dates: start: 20060628, end: 20060629
  2. OMEPRAZOLE [Suspect]
     Indication: PROPHYLAXIS
     Dosage: 20 MG ORAL
     Route: 048
     Dates: start: 20060628, end: 20060629
  3. ASPIRIN [Concomitant]
  4. GLIMEPIRIDE [Concomitant]
  5. VALSARTAN [Concomitant]
  6. NIFEDIPINE [Concomitant]
  7. NAFTOPIDIL [Concomitant]
  8. METFORMIN HYDROCHLORIDE [Concomitant]

REACTIONS (2)
  - DERMATITIS [None]
  - HEPATIC FUNCTION ABNORMAL [None]
